FAERS Safety Report 10501022 (Version 1)
Quarter: 2014Q4

REPORT INFORMATION
  Report Type: Spontaneous
  Country: US (occurrence: None)
  Receive Date: 20141003
  Receipt Date: 20141003
  Transmission Date: 20150528
  Serious: Yes (Other)
  Sender: FDA-Public Use
  Company Number: None

PATIENT
  Age: 35 Year
  Sex: Female
  Weight: 56.25 kg

DRUGS (2)
  1. CHLOROTHIAZIDE. [Suspect]
     Active Substance: CHLOROTHIAZIDE
     Indication: OEDEMA
     Route: 048
     Dates: start: 20131001, end: 20141001
  2. CHLOROTHIAZIDE. [Suspect]
     Active Substance: CHLOROTHIAZIDE
     Indication: HYPERTENSION
     Route: 048
     Dates: start: 20131001, end: 20141001

REACTIONS (1)
  - Alopecia [None]

NARRATIVE: CASE EVENT DATE: 20141001
